FAERS Safety Report 11054703 (Version 1)
Quarter: 2015Q2

REPORT INFORMATION
  Report Type: Spontaneous
  Country: US (occurrence: None)
  Receive Date: 20150420
  Receipt Date: 20150420
  Transmission Date: 20150821
  Serious: Yes (Other)
  Sender: FDA-Public Use
  Company Number: NSR_02045_2015

PATIENT
  Age: 27 Year
  Sex: Female

DRUGS (2)
  1. HYDROXYZINE [Suspect]
     Active Substance: HYDROXYZINE\HYDROXYZINE HYDROCHLORIDE
     Indication: PRODUCT USED FOR UNKNOWN INDICATION
     Dosage: ?1600-2250 MG  (NOT THE PRESCRIBED AMOUNT)
  2. OLANZAPINE. [Suspect]
     Active Substance: OLANZAPINE
     Indication: PRODUCT USED FOR UNKNOWN INDICATION
     Dosage: 150-300 MG (NOT THE PRESCRIBED AMOUNT)

REACTIONS (7)
  - Hallucination [None]
  - Skin warm [None]
  - Overdose [None]
  - Gastrointestinal sounds abnormal [None]
  - Agitation [None]
  - Dry skin [None]
  - Tachycardia [None]
